FAERS Safety Report 8414229-9 (Version None)
Quarter: 2012Q2

REPORT INFORMATION
  Report Type: 
  Country: None (occurrence: None)
  Receive Date: 20120605
  Receipt Date: 20120601
  Transmission Date: 20120825
  Serious: Yes (Hospitalization)
  Sender: FDA-Public Use
  Company Number: US-PFIZER INC-2012132648

PATIENT
  Sex: Female
  Weight: 127 kg

DRUGS (7)
  1. ZIAC [Concomitant]
     Indication: HYPERTENSION
     Dosage: 10 MG/ 6.25 MG, 2X/DAY
  2. PLAVIX [Concomitant]
     Indication: PERIPHERAL ARTERIAL OCCLUSIVE DISEASE
     Dosage: UNK, 1X/DAY
  3. LOSARTAN POTASSIUM [Suspect]
     Dosage: UNK
  4. LISINOPRIL [Suspect]
     Indication: HYPERTENSION
     Dosage: 10 MG, 1X/DAY
     Route: 048
     Dates: end: 20100201
  5. ACETYLSALICYLIC ACID [Concomitant]
     Dosage: 81 MG, 1X/DAY
  6. LIPITOR [Suspect]
     Indication: BLOOD CHOLESTEROL INCREASED
     Dosage: 10 MG, 1X/DAY
     Route: 048
  7. METFORMIN [Concomitant]
     Indication: DIABETES MELLITUS
     Dosage: 500 MG, 1X/DAY

REACTIONS (5)
  - SWOLLEN TONGUE [None]
  - GRIP STRENGTH DECREASED [None]
  - RENAL FAILURE [None]
  - GINGIVAL BLEEDING [None]
  - MALAISE [None]
